FAERS Safety Report 9565293 (Version 2)
Quarter: 2013Q3

REPORT INFORMATION
  Report Type: Spontaneous
  Country: IT (occurrence: IT)
  Receive Date: 20130930
  Receipt Date: 20130930
  Transmission Date: 20140515
  Serious: Yes (Hospitalization, Other)
  Sender: FDA-Public Use
  Company Number: IT-PFIZER INC-2013230055

PATIENT
  Age: 23 Year
  Sex: Male
  Weight: 55 kg

DRUGS (3)
  1. ARACYTIN [Suspect]
     Indication: ACUTE LYMPHOCYTIC LEUKAEMIA
     Dosage: 24 G/M2, TOTAL DOSE
     Route: 042
     Dates: start: 20121213, end: 20121221
  2. SANDIMMUN [Concomitant]
     Indication: ACUTE LYMPHOCYTIC LEUKAEMIA
     Dosage: 27 MG/KG, UNK
     Route: 042
     Dates: start: 20121215, end: 20121222
  3. ZAVEDOS [Concomitant]
     Indication: ACUTE LYMPHOCYTIC LEUKAEMIA
     Dosage: 35 MG/M2, UNK
     Route: 042
     Dates: start: 20121215, end: 20121222

REACTIONS (2)
  - Constipation [Recovered/Resolved]
  - Hyperpyrexia [Unknown]
